FAERS Safety Report 23629211 (Version 1)
Quarter: 2024Q1

REPORT INFORMATION
  Report Type: Spontaneous
  Country: US (occurrence: None)
  Receive Date: 20240313
  Receipt Date: 20240313
  Transmission Date: 20240409
  Serious: Yes (Hospitalization, Other)
  Sender: FDA-Public Use
  Company Number: 2024A057540

PATIENT
  Age: 67 Year
  Sex: Male
  Weight: 76.6 kg

DRUGS (29)
  1. CRESTOR [Suspect]
     Active Substance: ROSUVASTATIN CALCIUM
     Route: 048
     Dates: start: 20230316, end: 20240104
  2. VUDALIMAB [Suspect]
     Active Substance: VUDALIMAB
     Indication: Adenocarcinoma
     Route: 042
     Dates: start: 20230713, end: 20230713
  3. VUDALIMAB [Suspect]
     Active Substance: VUDALIMAB
     Indication: Adenocarcinoma
     Route: 042
     Dates: start: 20230728, end: 20230728
  4. VUDALIMAB [Suspect]
     Active Substance: VUDALIMAB
     Indication: Adenocarcinoma
     Route: 042
     Dates: start: 20230908, end: 20230908
  5. VUDALIMAB [Suspect]
     Active Substance: VUDALIMAB
     Indication: Adenocarcinoma
     Route: 042
     Dates: start: 20230922, end: 20230922
  6. VUDALIMAB [Suspect]
     Active Substance: VUDALIMAB
     Indication: Adenocarcinoma
     Route: 042
     Dates: start: 20231006, end: 20231006
  7. VUDALIMAB [Suspect]
     Active Substance: VUDALIMAB
     Indication: Adenocarcinoma
     Route: 042
     Dates: start: 20231020, end: 20231020
  8. VUDALIMAB [Suspect]
     Active Substance: VUDALIMAB
     Indication: Adenocarcinoma
     Route: 042
     Dates: start: 20231103, end: 20231103
  9. CABAZITAXEL [Suspect]
     Active Substance: CABAZITAXEL
     Indication: Adenocarcinoma
     Route: 042
     Dates: start: 20230713, end: 20230713
  10. CABAZITAXEL [Suspect]
     Active Substance: CABAZITAXEL
     Indication: Adenocarcinoma
     Route: 042
     Dates: start: 20230804, end: 20230804
  11. CABAZITAXEL [Suspect]
     Active Substance: CABAZITAXEL
     Indication: Adenocarcinoma
     Route: 042
     Dates: start: 20230825, end: 20230825
  12. CABAZITAXEL [Suspect]
     Active Substance: CABAZITAXEL
     Indication: Adenocarcinoma
     Route: 042
     Dates: start: 20230915, end: 20230915
  13. CABAZITAXEL [Suspect]
     Active Substance: CABAZITAXEL
     Indication: Adenocarcinoma
     Route: 042
     Dates: start: 20231006, end: 20231006
  14. CABAZITAXEL [Suspect]
     Active Substance: CABAZITAXEL
     Indication: Adenocarcinoma
     Route: 042
     Dates: start: 20231027, end: 20231027
  15. XGEVA [Concomitant]
     Active Substance: DENOSUMAB
  16. LEUPROLIDE [Concomitant]
     Active Substance: LEUPROLIDE
     Dates: start: 20210416
  17. TYLENOL [Concomitant]
     Active Substance: ACETAMINOPHEN
     Dates: start: 20221219
  18. IBUPROFEN [Concomitant]
     Active Substance: IBUPROFEN
     Dates: start: 20221219
  19. ZOFRAN [Concomitant]
     Active Substance: ONDANSETRON HYDROCHLORIDE
     Dates: start: 20230713
  20. IMODIUM [Concomitant]
     Active Substance: LOPERAMIDE HYDROCHLORIDE
     Dates: start: 20230713
  21. FLONASE [Concomitant]
     Active Substance: FLUTICASONE PROPIONATE
     Dates: start: 20230322
  22. ZINC SULFATE [Concomitant]
     Active Substance: ZINC SULFATE
     Dates: start: 20230414, end: 20230810
  23. VITAMIN C [Concomitant]
     Active Substance: ASCORBIC ACID
     Dates: start: 20220819
  24. SODIUM CHLORIDE [Concomitant]
     Active Substance: SODIUM CHLORIDE
     Dates: start: 20230804, end: 20230804
  25. VITAMIN D3 [Concomitant]
     Active Substance: CHOLECALCIFEROL
     Dates: start: 20220819
  26. DECADRON [Concomitant]
     Active Substance: DEXAMETHASONE
     Dates: start: 20220713, end: 20230804
  27. BENADRYL [Concomitant]
     Active Substance: DIPHENHYDRAMINE HYDROCHLORIDE
     Dates: start: 20230713, end: 20230804
  28. PEPCID [Concomitant]
     Active Substance: FAMOTIDINE
     Dates: start: 20230713, end: 20230804
  29. NEULASTA [Concomitant]
     Active Substance: PEGFILGRASTIM
     Dates: start: 20230713, end: 20230804

REACTIONS (40)
  - Sepsis syndrome [Recovered/Resolved]
  - Pancreatitis [Unknown]
  - Pyrexia [Unknown]
  - Decreased appetite [Unknown]
  - Dyspnoea [Unknown]
  - Cardiac discomfort [Unknown]
  - Restenosis [Unknown]
  - Nausea [Unknown]
  - Vomiting [Unknown]
  - Constipation [Unknown]
  - Pallor [Unknown]
  - Syncope [Unknown]
  - Hyperhidrosis [Unknown]
  - Thirst [Unknown]
  - Asthenia [Unknown]
  - Chills [Unknown]
  - Dizziness [Unknown]
  - Febrile infection [Unknown]
  - Body temperature increased [Unknown]
  - Liver function test [Unknown]
  - Blood alkaline phosphatase [Unknown]
  - Aspartate aminotransferase [Unknown]
  - Alanine aminotransferase [Unknown]
  - Hyperbilirubinaemia [Recovered/Resolved]
  - Blood bilirubin [Unknown]
  - White blood cell count [Unknown]
  - Haemoglobin [Unknown]
  - Haematocrit [Unknown]
  - Neutrophil count [Unknown]
  - Blood sodium [Recovered/Resolved]
  - Blood potassium [Unknown]
  - Blood creatinine [Unknown]
  - Blood albumin [Unknown]
  - Laboratory test abnormal [Unknown]
  - Illness [Unknown]
  - Hyperhidrosis [Unknown]
  - Platelet count decreased [Unknown]
  - Hypertransaminasaemia [Recovered/Resolved]
  - Blood alkaline phosphatase increased [Unknown]
  - No adverse event [Unknown]

NARRATIVE: CASE EVENT DATE: 20230801
